FAERS Safety Report 8443830-1 (Version None)
Quarter: 2012Q2

REPORT INFORMATION
  Report Type: 
  Country: None (occurrence: None)
  Receive Date: 20120323
  Receipt Date: 20110804
  Transmission Date: 20120825
  Serious: Yes (Hospitalization, Disabling)
  Sender: FDA-Public Use
  Company Number: 163-21880-11060106

PATIENT
  Age: 69 Year
  Sex: Male

DRUGS (10)
  1. SODIUM BICARBONATE IN PLASTIC CONTAINER [Concomitant]
  2. DEXAMETHASONE [Concomitant]
  3. LORAZEPAM [Concomitant]
  4. NOVOLOG [Concomitant]
  5. HUMULIN N [Concomitant]
  6. ANTIVERT [Concomitant]
  7. VELCADE [Concomitant]
  8. REVLIMID [Suspect]
     Indication: MULTIPLE MYELOMA
     Dosage: 15 MG, QD D1-21/28, PO
     Route: 048
     Dates: start: 20110406, end: 20110523
  9. LEVEMIR [Concomitant]
  10. TRAZODONE HCL [Concomitant]

REACTIONS (1)
  - ASTHENIA [None]
